FAERS Safety Report 4309061-1 (Version None)
Quarter: 2004Q1

REPORT INFORMATION
  Report Type: 
  Country: None (occurrence: None)
  Receive Date: 20040301
  Receipt Date: 20031125
  Transmission Date: 20041129
  Serious: Yes (Hospitalization)
  Sender: FDA-Public Use
  Company Number: F04200300204

PATIENT
  Age: 57 Year
  Sex: Male

DRUGS (4)
  1. ELOXATIN [Suspect]
     Indication: METASTASES TO LIVER
     Dosage: 50 MG/M2 OTHER (CUMULATIVE DOSE 500 MG/M2)
     Route: 041
     Dates: start: 20030618, end: 20030618
  2. ELOXATIN [Suspect]
     Indication: RECTAL CANCER
     Dosage: 50 MG/M2 OTHER (CUMULATIVE DOSE 500 MG/M2)
     Route: 041
     Dates: start: 20030618, end: 20030618
  3. XELODA [Suspect]
     Indication: METASTASES TO LIVER
     Dosage: 1500 MG/M2 OTHER (CUMULATIVE DOSE 210000 MG/M2)
     Route: 048
     Dates: start: 20030618, end: 20030701
  4. XELODA [Suspect]
     Indication: RECTAL CANCER
     Dosage: 1500 MG/M2 OTHER (CUMULATIVE DOSE 210000 MG/M2)
     Route: 048
     Dates: start: 20030618, end: 20030701

REACTIONS (3)
  - ABDOMINAL OPERATION [None]
  - ENTEROVESICAL FISTULA [None]
  - TUMOUR NECROSIS [None]
